FAERS Safety Report 14524894 (Version 1)
Quarter: 2018Q1

REPORT INFORMATION
  Report Type: Spontaneous
  Country: US (occurrence: US)
  Receive Date: 20180210
  Receipt Date: 20180210
  Transmission Date: 20180509
  Serious: Yes (Hospitalization)
  Sender: FDA-Public Use
  Company Number: None

PATIENT
  Age: 50 Year
  Sex: Female

DRUGS (6)
  1. TRAVATAN [Concomitant]
     Active Substance: TRAVOPROST
  2. COUMADIN [Concomitant]
     Active Substance: WARFARIN SODIUM
  3. CLONAZEPAM. [Concomitant]
     Active Substance: CLONAZEPAM
  4. TOPAMAX [Concomitant]
     Active Substance: TOPIRAMATE
  5. GILENYA [Suspect]
     Active Substance: FINGOLIMOD HYDROCHLORIDE
     Indication: MULTIPLE SCLEROSIS
     Dosage: ONE CAPSULE EVERY MORNING BY  MOUTH
     Route: 048
     Dates: start: 20171013
  6. LITHIUM. [Concomitant]
     Active Substance: LITHIUM

REACTIONS (1)
  - Hospitalisation [None]

NARRATIVE: CASE EVENT DATE: 201802
